FAERS Safety Report 8500534-4 (Version None)
Quarter: 2012Q3

REPORT INFORMATION
  Report Type: 
  Country: None (occurrence: None)
  Receive Date: 20120710
  Receipt Date: 20120709
  Transmission Date: 20120928
  Serious: Yes (Other)
  Sender: FDA-Public Use
  Company Number: US-ABBOTT-12P-163-0948416-00

PATIENT
  Sex: Male
  Weight: 74.91 kg

DRUGS (7)
  1. FOLIC ACID [Concomitant]
     Indication: VITAMIN SUPPLEMENTATION
  2. METHOTREXATE [Concomitant]
     Indication: RHEUMATOID ARTHRITIS
  3. HUMIRA [Suspect]
     Indication: RHEUMATOID ARTHRITIS
     Dates: end: 20120501
  4. OMEPRAZOLE [Concomitant]
     Indication: DRUG INTOLERANCE
  5. VITAMIN TAB [Concomitant]
     Indication: VITAMIN SUPPLEMENTATION
  6. OMEPRAZOLE [Concomitant]
     Indication: PROPHYLAXIS
  7. WELLBUTRIN [Concomitant]
     Indication: PRODUCT USED FOR UNKNOWN INDICATION

REACTIONS (3)
  - DIPLOPIA [None]
  - APPENDICITIS [None]
  - VISUAL IMPAIRMENT [None]
